FAERS Safety Report 8456909-5 (Version None)
Quarter: 2012Q2

REPORT INFORMATION
  Report Type: 
  Country: None (occurrence: None)
  Receive Date: 20120621
  Receipt Date: 20120611
  Transmission Date: 20120825
  Serious: Yes (Hospitalization, Other)
  Sender: FDA-Public Use
  Company Number: JP-JNJFOC-20120403326

PATIENT
  Sex: Male

DRUGS (17)
  1. NORVIR [Concomitant]
     Route: 048
     Dates: start: 20110117
  2. OXYGEN [Concomitant]
     Route: 055
     Dates: start: 20101219, end: 20101228
  3. DOXORUBICIN HCL [Suspect]
     Indication: KAPOSI'S SARCOMA AIDS RELATED
     Dosage: CYCLE 3
     Route: 042
     Dates: start: 20110118, end: 20110118
  4. DOXORUBICIN HCL [Suspect]
     Dosage: CYCLE 2
     Route: 042
     Dates: start: 20110104, end: 20110104
  5. DOXORUBICIN HCL [Suspect]
     Dosage: CYCLE 4
     Route: 042
     Dates: start: 20110201, end: 20110201
  6. GANCICLOVIR [Concomitant]
     Route: 042
     Dates: start: 20101220, end: 20101221
  7. FRESH FROZEN PLASMA [Concomitant]
     Route: 041
     Dates: start: 20101220, end: 20101220
  8. PREZISTA [Concomitant]
     Route: 048
     Dates: start: 20110117
  9. ADONA [Concomitant]
     Route: 042
     Dates: start: 20101219, end: 20101221
  10. GRAN [Concomitant]
     Dosage: 150MCG/3-5DAYS
     Route: 058
     Dates: start: 20110102, end: 20110126
  11. GRAN [Concomitant]
     Dosage: 75MCG/4-7DAYS
     Route: 058
     Dates: start: 20110102, end: 20110126
  12. DAIPHEN [Concomitant]
     Indication: PROPHYLAXIS
     Route: 048
     Dates: start: 20101203, end: 20111213
  13. TRUVADA [Concomitant]
     Route: 048
     Dates: start: 20110117
  14. INOVAN [Concomitant]
     Route: 042
     Dates: start: 20101219, end: 20101222
  15. DOXORUBICIN HCL [Suspect]
     Dosage: CYCLE 1
     Route: 042
     Dates: start: 20101218, end: 20101218
  16. TRANSAMINE CAP [Concomitant]
     Route: 042
     Dates: start: 20101219, end: 20101221
  17. PLATELETS [Concomitant]
     Route: 041
     Dates: start: 20101217, end: 20101218

REACTIONS (3)
  - BLOOD PRESSURE DECREASED [None]
  - HEPATIC FUNCTION ABNORMAL [None]
  - RESPIRATORY DISORDER [None]
